FAERS Safety Report 21296433 (Version 2)
Quarter: 2022Q4

REPORT INFORMATION
  Report Type: Spontaneous
  Country: JP (occurrence: JP)
  Receive Date: 20220906
  Receipt Date: 20221005
  Transmission Date: 20230113
  Serious: Yes (Other)
  Sender: FDA-Public Use
  Company Number: JP-BAYER-2022A124740

PATIENT
  Age: 80 Year
  Sex: Female

DRUGS (2)
  1. XARELTO [Suspect]
     Active Substance: RIVAROXABAN
     Indication: Atrial fibrillation
     Dosage: 10 MG
     Route: 048
     Dates: start: 202205, end: 2022
  2. XARELTO [Suspect]
     Active Substance: RIVAROXABAN
     Indication: Atrial fibrillation
     Dosage: DAILY DOSE 5 MG
     Route: 048
     Dates: start: 202209

REACTIONS (3)
  - Renal impairment [Unknown]
  - Off label use [Unknown]
  - Wrong technique in product usage process [Unknown]
